FAERS Safety Report 9057269 (Version 1)
Quarter: 2013Q1

REPORT INFORMATION
  Report Type: Report from Study
  Country: JP (occurrence: JP)
  Receive Date: 20130131
  Receipt Date: 20130131
  Transmission Date: 20140127
  Serious: Yes (Other)
  Sender: FDA-Public Use
  Company Number: JP-GLAXOSMITHKLINE-B0860302A

PATIENT
  Age: 63 None
  Sex: Female
  Weight: 50 kg

DRUGS (9)
  1. TYKERB [Suspect]
     Indication: BREAST CANCER
     Route: 048
     Dates: start: 20100408, end: 20100531
  2. TYKERB [Suspect]
     Indication: BREAST CANCER
     Route: 048
     Dates: start: 20100609, end: 20101012
  3. XELODA [Suspect]
     Route: 048
     Dates: start: 20100408, end: 20100414
  4. XELODA [Suspect]
     Route: 048
     Dates: start: 20100415, end: 20100511
  5. XELODA [Suspect]
     Route: 048
     Dates: start: 20100519, end: 20100525
  6. XELODA [Suspect]
     Route: 048
     Dates: start: 20100609, end: 20100622
  7. XELODA [Suspect]
     Route: 048
     Dates: start: 20100721, end: 20100803
  8. XELODA [Suspect]
     Route: 048
     Dates: start: 20100901, end: 20100928
  9. PYDOXAL [Concomitant]
     Indication: PROPHYLAXIS
     Route: 048
     Dates: start: 20100408, end: 20100928

REACTIONS (6)
  - Cellulitis [Recovered/Resolved]
  - Diarrhoea [Recovering/Resolving]
  - Rash [Recovered/Resolved]
  - Palmar-plantar erythrodysaesthesia syndrome [Recovering/Resolving]
  - Blood bilirubin increased [Recovered/Resolved]
  - Neutrophil count decreased [Recovered/Resolved]
